FAERS Safety Report 6459892-7 (Version None)
Quarter: 2009Q4

REPORT INFORMATION
  Report Type: 
  Country: None (occurrence: None)
  Receive Date: 20091129
  Receipt Date: 20091116
  Transmission Date: 20100525
  Serious: Yes (Other)
  Sender: FDA-Public Use
  Company Number: PHHY2009JP49328

PATIENT
  Age: 63 Year
  Sex: Male

DRUGS (3)
  1. TEGRETOL [Suspect]
     Indication: BIPOLAR I DISORDER
     Dosage: 400MG DAILY
     Route: 048
     Dates: start: 20090620, end: 20090930
  2. TEGRETOL [Suspect]
     Dosage: 500MG DAILY
     Route: 048
     Dates: start: 20091001, end: 20091012
  3. TEGRETOL [Suspect]
     Dosage: 700MG DAILY
     Route: 048
     Dates: start: 20091013

REACTIONS (1)
  - CEREBELLAR ATAXIA [None]
